FAERS Safety Report 16667001 (Version 2)
Quarter: 2021Q3

REPORT INFORMATION
  Report Type: Spontaneous
  Country: US (occurrence: US)
  Receive Date: 20190805
  Receipt Date: 20210917
  Transmission Date: 20211014
  Serious: Yes (Hospitalization)
  Sender: FDA-Public Use
  Company Number: US-SAMSUNG BIOEPIS-SB-2019-21787

PATIENT
  Age: 63 Year
  Sex: Male

DRUGS (1)
  1. INFLIXIMAB [Suspect]
     Active Substance: INFLIXIMAB
     Indication: COLITIS ULCERATIVE
     Dosage: 470 MG/DOSE?SECOND AND THIRD DOSE ONE MONTH BETWEEN JUL?2018 AND AUG?2018.
     Route: 065
     Dates: start: 2018

REACTIONS (2)
  - Vanishing bile duct syndrome [Unknown]
  - Hepatic failure [Unknown]
